FAERS Safety Report 12815324 (Version 1)
Quarter: 2016Q4

REPORT INFORMATION
  Report Type: Report from Study
  Country: IT (occurrence: IT)
  Receive Date: 20161005
  Receipt Date: 20161005
  Transmission Date: 20170207
  Serious: Yes (Hospitalization)
  Sender: FDA-Public Use
  Company Number: IT-TEVA-698432ACC

PATIENT
  Age: 84 Year
  Sex: Female

DRUGS (4)
  1. EUTIROX - 175 MICROGRAMMI COMPRESSE [Concomitant]
     Indication: HYPOTHYROIDISM
     Dosage: 175 MG
  2. CARBOLITHIUM - 150 MG CAPSULE RIGIDE - TEVA ITALIA S.R.L. [Suspect]
     Active Substance: LITHIUM CARBONATE
     Indication: DEPRESSION
     Dosage: 300 MILLIGRAM DAILY;
     Route: 048
     Dates: start: 19760101, end: 20160624
  3. DEBRUM [Concomitant]
     Indication: PRODUCT USED FOR UNKNOWN INDICATION
  4. ENAPREN - 5 MG COMPRESSE [Concomitant]
     Active Substance: ENALAPRIL MALEATE
     Indication: HYPERTENSION
     Dosage: 2 DF
     Route: 048

REACTIONS (4)
  - Cognitive disorder [Recovered/Resolved]
  - Tremor [Recovered/Resolved]
  - Agitation [Recovered/Resolved]
  - Condition aggravated [Recovered/Resolved]

NARRATIVE: CASE EVENT DATE: 20160624
